FAERS Safety Report 22367142 (Version 2)
Quarter: 2023Q2

REPORT INFORMATION
  Report Type: Spontaneous
  Country: US (occurrence: US)
  Receive Date: 20230525
  Receipt Date: 20230613
  Transmission Date: 20230722
  Serious: Yes (Hospitalization)
  Sender: FDA-Public Use
  Company Number: US-TEVA-2023-US-2889321

PATIENT
  Age: 65 Year
  Sex: Female

DRUGS (1)
  1. STREPTOZOCIN [Suspect]
     Active Substance: STREPTOZOCIN
     Indication: Adrenal gland cancer
     Route: 065

REACTIONS (1)
  - Tubulointerstitial nephritis [Recovering/Resolving]
